FAERS Safety Report 25793982 (Version 2)
Quarter: 2025Q3

REPORT INFORMATION
  Report Type: Spontaneous
  Country: US (occurrence: US)
  Receive Date: 20250912
  Receipt Date: 20250930
  Transmission Date: 20251021
  Serious: Yes (Other)
  Sender: BRISTOL-MYERS SQUIBB COMPANY
  Company Number: US-BRISTOL-MYERS SQUIBB COMPANY-2025-125331

PATIENT
  Age: 86 Year
  Sex: Female

DRUGS (1)
  1. ORENCIA [Suspect]
     Active Substance: ABATACEPT
     Indication: Rheumatoid arthritis
     Dates: start: 202201, end: 202509

REACTIONS (4)
  - Infection [Unknown]
  - Rheumatoid arthritis [Unknown]
  - Urinary tract infection [Recovered/Resolved]
  - Coronary artery disease [Unknown]

NARRATIVE: CASE EVENT DATE: 20250901
